FAERS Safety Report 9794584 (Version 1)
Quarter: 2014Q1

REPORT INFORMATION
  Report Type: Report from Study
  Country: PR (occurrence: PR)
  Receive Date: 20140102
  Receipt Date: 20140102
  Transmission Date: 20141002
  Serious: Yes (Other)
  Sender: FDA-Public Use
  Company Number: PR-ABBVIE-13P-131-1184913-00

PATIENT
  Age: 47 Year
  Sex: Female
  Weight: 61.29 kg

DRUGS (4)
  1. HUMIRA [Suspect]
     Indication: PSORIASIS
     Route: 058
     Dates: end: 20131122
  2. HUMIRA [Suspect]
     Indication: PSORIATIC ARTHROPATHY
  3. ULTRAM [Concomitant]
     Indication: PAIN
  4. KLONOZEOPAM [Concomitant]
     Indication: DEPRESSION
     Route: 048

REACTIONS (4)
  - Wrist fracture [Not Recovered/Not Resolved]
  - Immunodeficiency [Recovering/Resolving]
  - Haemoglobin decreased [Recovering/Resolving]
  - Fall [Unknown]
